FAERS Safety Report 16038842 (Version 1)
Quarter: 2019Q1

REPORT INFORMATION
  Report Type: Report from Study
  Country: None (occurrence: ES)
  Receive Date: 20190306
  Receipt Date: 20190306
  Transmission Date: 20190418
  Serious: Yes (Death)
  Sender: FDA-Public Use
  Company Number: ES-ABBVIE-19S-144-2673327-00

PATIENT
  Age: 75 Year
  Sex: Male
  Weight: 60 kg

DRUGS (1)
  1. DUODOPA [Suspect]
     Active Substance: CARBIDOPA\LEVODOPA
     Indication: PARKINSON^S DISEASE
     Dosage: MD: 17 ML??CD: 5 ML/H??ED: 3.5 ML
     Route: 050
     Dates: start: 20141126

REACTIONS (4)
  - On and off phenomenon [Not Recovered/Not Resolved]
  - Influenza [Recovered/Resolved]
  - Therapeutic response shortened [Unknown]
  - Unevaluable event [Fatal]

NARRATIVE: CASE EVENT DATE: 20190204
